FAERS Safety Report 26051835 (Version 1)
Quarter: 2025Q4

REPORT INFORMATION
  Report Type: Spontaneous
  Country: CA (occurrence: CA)
  Receive Date: 20251117
  Receipt Date: 20251117
  Transmission Date: 20260117
  Serious: Yes (Hospitalization, Other)
  Sender: CELLTRION
  Company Number: CA-CELLTRION INC.-2025CA041522

PATIENT

DRUGS (4)
  1. INFLECTRA [Suspect]
     Active Substance: INFLIXIMAB-DYYB
     Indication: Product used for unknown indication
     Dosage: UNK
  2. IXIFI [Suspect]
     Active Substance: INFLIXIMAB-QBTX
     Indication: Crohn^s disease
     Dosage: 5 MG/KG Q6 WEEKS
     Route: 042
     Dates: start: 20251017
  3. IXIFI [Suspect]
     Active Substance: INFLIXIMAB-QBTX
     Dosage: 5 MG/KG Q6 WEEKS
     Route: 042
     Dates: start: 20251017
  4. PURINETHOL [Concomitant]
     Active Substance: MERCAPTOPURINE
     Dosage: 50 MILLIGRAM

REACTIONS (8)
  - Hospitalisation [Recovered/Resolved]
  - Loss of consciousness [Recovered/Resolved]
  - Swelling [Unknown]
  - Cough [Not Recovered/Not Resolved]
  - Decreased immune responsiveness [Unknown]
  - Ill-defined disorder [Unknown]
  - Infection susceptibility increased [Unknown]
  - Treatment delayed [Unknown]

NARRATIVE: CASE EVENT DATE: 20251020
